FAERS Safety Report 24537321 (Version 1)
Quarter: 2024Q4

REPORT INFORMATION
  Report Type: Spontaneous
  Country: CN (occurrence: CN)
  Receive Date: 20241022
  Receipt Date: 20241022
  Transmission Date: 20250114
  Serious: Yes (Other)
  Sender: SANDOZ
  Company Number: CN-SANDOZ-SDZ2024CN087915

PATIENT
  Age: 54 Year
  Sex: Female

DRUGS (1)
  1. MOMETASONE FUROATE [Suspect]
     Active Substance: MOMETASONE FUROATE
     Indication: Solar dermatitis
     Dosage: UNK
     Route: 065

REACTIONS (3)
  - Renal tubular dysfunction [Unknown]
  - Pneumonia [Unknown]
  - Off label use [Unknown]
